FAERS Safety Report 5132311-9 (Version None)
Quarter: 2006Q4

REPORT INFORMATION
  Report Type: 
  Country: None (occurrence: None)
  Receive Date: 20061019
  Receipt Date: 20061019
  Transmission Date: 20070319
  Serious: Yes (Disabling, Other)
  Sender: FDA-Public Use
  Company Number: None

PATIENT
  Sex: Male
  Weight: 76.2043 kg

DRUGS (1)
  1. LIPITOR [Suspect]
     Indication: HYPERCHOLESTEROLAEMIA
     Dosage: 1 TABLET 20MG ONCE DAILY BY MOUTH
     Route: 048
     Dates: start: 20050401, end: 20060501

REACTIONS (7)
  - BACK PAIN [None]
  - BUTTOCK PAIN [None]
  - FATIGUE [None]
  - OEDEMA PERIPHERAL [None]
  - PAIN IN EXTREMITY [None]
  - PARAESTHESIA [None]
  - TENDERNESS [None]
